FAERS Safety Report 19495537 (Version 1)
Quarter: 2021Q3

REPORT INFORMATION
  Report Type: Spontaneous
  Country: PT (occurrence: PT)
  Receive Date: 20210706
  Receipt Date: 20210706
  Transmission Date: 20211014
  Serious: Yes (Other)
  Sender: FDA-Public Use
  Company Number: PT-SAMSUNG BIOEPIS-SB-2021-15341

PATIENT
  Age: 53 Year
  Sex: Female

DRUGS (10)
  1. STELARA [Suspect]
     Active Substance: USTEKINUMAB
     Indication: PSORIASIS
  2. ETANERCEPT [Suspect]
     Active Substance: ETANERCEPT
     Indication: PSORIATIC ARTHROPATHY
     Dosage: UNKNOWN
     Route: 065
  3. ADALIMUMAB [Suspect]
     Active Substance: ADALIMUMAB
     Indication: PSORIASIS
     Dosage: UNKNOWN
     Route: 065
  4. ADALIMUMAB [Suspect]
     Active Substance: ADALIMUMAB
     Indication: PSORIATIC ARTHROPATHY
  5. SECUKINUMAB. [Suspect]
     Active Substance: SECUKINUMAB
     Indication: PSORIATIC ARTHROPATHY
  6. REMICADE [Suspect]
     Active Substance: INFLIXIMAB
     Indication: PSORIASIS
  7. STELARA [Suspect]
     Active Substance: USTEKINUMAB
     Indication: PSORIATIC ARTHROPATHY
     Dosage: UNKNOWN
     Route: 065
  8. ETANERCEPT [Suspect]
     Active Substance: ETANERCEPT
     Indication: PSORIASIS
  9. REMICADE [Suspect]
     Active Substance: INFLIXIMAB
     Indication: PSORIATIC ARTHROPATHY
     Dosage: UNKNOWN
     Route: 065
  10. SECUKINUMAB. [Suspect]
     Active Substance: SECUKINUMAB
     Indication: PSORIASIS
     Dosage: UNKNOWN
     Route: 065

REACTIONS (2)
  - Psoriasis [Recovering/Resolving]
  - Psoriatic arthropathy [Recovering/Resolving]
